FAERS Safety Report 14633251 (Version 1)
Quarter: 2018Q1

REPORT INFORMATION
  Report Type: Report from Study
  Country: US (occurrence: US)
  Receive Date: 20180313
  Receipt Date: 20180313
  Transmission Date: 20180509
  Serious: Yes (Hospitalization, Other)
  Sender: FDA-Public Use
  Company Number: US-GILEAD-2018-0325806

PATIENT
  Age: 42 Year
  Sex: Male

DRUGS (1)
  1. LEDIPASVIR/SOFOSBUVIR [Suspect]
     Active Substance: LEDIPASVIR\SOFOSBUVIR
     Indication: HEPATITIS C
     Dosage: 1 DF, UNK
     Route: 048
     Dates: start: 20180215

REACTIONS (4)
  - Anxiety [Not Recovered/Not Resolved]
  - Distractibility [Not Recovered/Not Resolved]
  - Rhabdomyolysis [Unknown]
  - Disturbance in attention [Not Recovered/Not Resolved]
